FAERS Safety Report 7864836-7 (Version None)
Quarter: 2011Q4

REPORT INFORMATION
  Report Type: 
  Country: None (occurrence: None)
  Receive Date: 20111028
  Receipt Date: 20100901
  Transmission Date: 20120403
  Serious: No
  Sender: FDA-Public Use
  Company Number: US-GLAXOSMITHKLINE-A0878934A

PATIENT
  Age: 74 Year
  Sex: Male

DRUGS (10)
  1. ATENOLOL [Concomitant]
  2. FOLIC ACID [Concomitant]
  3. ADVAIR DISKUS 100/50 [Suspect]
     Indication: CHRONIC OBSTRUCTIVE PULMONARY DISEASE
     Dosage: 1PUFF TWICE PER DAY
     Route: 055
     Dates: start: 20090901, end: 20091001
  4. SERTRALINE HYDROCHLORIDE [Concomitant]
  5. AMLODIPINE [Concomitant]
  6. ADVAIR DISKUS 100/50 [Suspect]
     Route: 055
  7. SPIRIVA [Concomitant]
  8. ASPIRIN [Concomitant]
  9. SIMVASTATIN [Concomitant]
  10. TRILIPIX [Concomitant]

REACTIONS (4)
  - DRUG INEFFECTIVE [None]
  - OROPHARYNGEAL PAIN [None]
  - DYSPHONIA [None]
  - NO THERAPEUTIC RESPONSE [None]
